FAERS Safety Report 14968186 (Version 4)
Quarter: 2018Q4

REPORT INFORMATION
  Report Type: Spontaneous
  Country: US (occurrence: US)
  Receive Date: 20180604
  Receipt Date: 20181120
  Transmission Date: 20190204
  Serious: Yes (Other)
  Sender: FDA-Public Use
  Company Number: US-PFIZER INC-2018224752

PATIENT
  Age: 32 Year
  Sex: Male

DRUGS (43)
  1. DILANTIN [Suspect]
     Active Substance: PHENYTOIN
     Dosage: 300 MG, DAILY, AT BEDTIME
     Route: 048
     Dates: start: 20100412, end: 20100413
  2. DILANTIN [Suspect]
     Active Substance: PHENYTOIN
     Dosage: 400 MG, 2X/DAY (REPORTED AS TOOK TWO 100 MG CAPSULES EVERY AM AND TWO 100 MG CAPSULES EVERY PM)
     Route: 048
     Dates: start: 20111130, end: 20120228
  3. DILANTIN [Suspect]
     Active Substance: PHENYTOIN
     Indication: SEIZURE
     Dosage: 300 MG, DAILY, AT BEDTIME (3 CAPSULES)
     Route: 048
     Dates: start: 20081216, end: 20091015
  4. DILANTIN [Suspect]
     Active Substance: PHENYTOIN
     Dosage: 400 MG, EVERY NIGHT (REPORTED AS REPORTED AS 100 MG, 4 CAPSULES QHS)
     Route: 048
     Dates: start: 20140228, end: 20141219
  5. ZONISAMIDE. [Concomitant]
     Active Substance: ZONISAMIDE
     Dosage: 50 MG, DAILY
     Route: 048
  6. NORCO [Concomitant]
     Active Substance: ACETAMINOPHEN\HYDROCODONE BITARTRATE
     Indication: PAIN
     Dosage: 1-2 TABS EVERY 4 HOURS, AS NEEDED
     Route: 048
     Dates: start: 20141219, end: 20150504
  7. LAMICTAL [Concomitant]
     Active Substance: LAMOTRIGINE
     Dosage: 50 MG, 2X/WEEK, ONCE A DAY
     Route: 048
     Dates: start: 20130821, end: 20130823
  8. LAMICTAL [Concomitant]
     Active Substance: LAMOTRIGINE
     Dosage: 50 MG, 2X/WEEK, TWICE A DAY
     Route: 048
  9. ZOFRAN [Concomitant]
     Active Substance: ONDANSETRON HYDROCHLORIDE
     Indication: VOMITING
  10. ZOFRAN [Concomitant]
     Active Substance: ONDANSETRON HYDROCHLORIDE
     Indication: NAUSEA
     Dosage: 4 MG, AS NEEDED EVERY 6 HOURS
     Route: 048
     Dates: start: 20130302, end: 20140302
  11. ATIVAN [Concomitant]
     Active Substance: LORAZEPAM
     Dosage: 1 MG, DAILY
     Route: 048
     Dates: start: 20100315, end: 20100315
  12. DILANTIN [Suspect]
     Active Substance: PHENYTOIN
     Indication: SEIZURE
     Dosage: 200 MG IN THE MORNING AND 300 MG AT BEDTIME
     Route: 048
  13. DILANTIN [Suspect]
     Active Substance: PHENYTOIN
     Dosage: 300 MG, DAILY (100 MG, 3 CAPSULES AT BEDTIME)
     Route: 048
     Dates: start: 20071101, end: 20080916
  14. DILANTIN [Suspect]
     Active Substance: PHENYTOIN
     Dosage: 300 MG, DAILY, 100MG QAM AND 300MG QHS
     Dates: start: 20130821, end: 20130823
  15. DILANTIN [Suspect]
     Active Substance: PHENYTOIN
     Dosage: 400 MG, DAILY (REPORTED AS 100 MG, 4 CAPSULES AT BEDTIME)
     Route: 048
     Dates: start: 20140223, end: 20140306
  16. DILANTIN [Suspect]
     Active Substance: PHENYTOIN
     Dosage: 400 MG, DAILY (REPORTED AS 100 MG, 4 CAPSULES AT BEDTIME)
     Route: 048
     Dates: start: 20140910, end: 20151013
  17. PHENYTOIN SODIUM. [Suspect]
     Active Substance: PHENYTOIN SODIUM
     Indication: SEIZURE
     Dosage: 200 MG, DAILY
     Route: 048
  18. LAMICTAL [Concomitant]
     Active Substance: LAMOTRIGINE
     Dosage: 50 MG, ONCE A WEEK, TWICE A DAY
     Route: 048
  19. KEPPRA [Concomitant]
     Active Substance: LEVETIRACETAM
     Dosage: 1.5 DF, UNK
     Route: 048
  20. CORTISPORIN [Concomitant]
     Active Substance: BACITRACIN ZINC\HYDROCORTISONE\NEOMYCIN SULFATE\POLYMYXIN B SULFATE
     Dosage: 3.5-10000-1 OTIC SUSPENSION, 4 DROPS INTO THE LEFT EAR 4 TIMES DAILY
     Dates: start: 20131107, end: 20150504
  21. CIPRODEX [Concomitant]
     Active Substance: CIPROFLOXACIN HYDROCHLORIDE\DEXAMETHASONE
     Dosage: OTIC SUSPENSION 4 DROPS INTO THE LEFT EAR, 2X/DAY
     Dates: start: 20111125, end: 20111129
  22. DILANTIN [Suspect]
     Active Substance: PHENYTOIN
     Dosage: 500 MG, DAILY (REPORTED AS 100 MG CAPSULES, 2 IN MORNING AND 3 IN THE EVENING)
     Route: 048
     Dates: start: 20080109, end: 20081119
  23. DILANTIN [Suspect]
     Active Substance: PHENYTOIN
     Dosage: 300 MG, DAILY, AT BEDTIME
     Route: 048
     Dates: start: 20100413, end: 20111128
  24. DILANTIN [Suspect]
     Active Substance: PHENYTOIN
     Dosage: 300 MG, DAILY, AT BEDTIME (REPORTED AS 100 MG, 3 CAPSULE)
     Route: 048
     Dates: start: 20111128, end: 20111130
  25. DILANTIN [Suspect]
     Active Substance: PHENYTOIN
     Dosage: 300 MG, DAILY, AT BEDTIME (100 MG, 3 CAPSULES)
     Route: 048
     Dates: start: 20091016, end: 20100405
  26. DILANTIN [Suspect]
     Active Substance: PHENYTOIN
     Dosage: 400 MG, DAILY (REPORTED AS 100 MG, 4 CAPSULES AT BEDTIME)
     Route: 048
     Dates: start: 20140310, end: 20140317
  27. KEPPRA [Concomitant]
     Active Substance: LEVETIRACETAM
     Indication: SEIZURE
     Dosage: 500 MG, 2X/DAY (REPORTED AS 5 REFILLS)
     Route: 048
     Dates: start: 2016, end: 2017
  28. DILANTIN [Suspect]
     Active Substance: PHENYTOIN
     Dosage: 300 MG, DAILY, TOOK THREE 100 MG CAPSULES AT BEDTIME
     Route: 048
     Dates: start: 20120228, end: 20120618
  29. MOTRIN [Concomitant]
     Active Substance: IBUPROFEN
     Indication: PAIN
     Dosage: TAB BY MOUTH EVERY 6 HOURS, AS NEEDED
     Route: 048
     Dates: start: 20130302, end: 20140302
  30. TRILEPTAL [Concomitant]
     Active Substance: OXCARBAZEPINE
     Dosage: 150 MG, 2X/DAY
     Route: 048
     Dates: start: 20141219, end: 20150504
  31. LAMICTAL [Concomitant]
     Active Substance: LAMOTRIGINE
     Dosage: 150 MG, 2X/DAY
     Route: 048
  32. ZANTAC [Concomitant]
     Active Substance: RANITIDINE HYDROCHLORIDE
     Dosage: 300 MG, 2X/DAY
     Route: 048
     Dates: start: 20130308, end: 20130821
  33. AUGMENTIN [Concomitant]
     Active Substance: AMOXICILLIN\CLAVULANATE POTASSIUM
     Dosage: 1 DF, 2X/DAY WITH BREAKFAST AND DINNER
     Route: 048
     Dates: start: 20111125, end: 20111129
  34. FOLGARD RX [Concomitant]
     Dosage: 2.2-25-0.5 MG 1 DF, DAILY
     Route: 048
     Dates: start: 20100413, end: 20110620
  35. VITAMIN B COMPLEX [Concomitant]
     Active Substance: CYANOCOBALAMIN\DEXPANTHENOL\NIACINAMIDE\PYRIDOXINE HYDROCHLORIDE\RIBOFLAVIN 5^-PHOSPHATE SODIUM\THIAMINE HYDROCHLORIDE\VITAMIN B COMPLEX
     Dosage: UNK
     Route: 048
     Dates: start: 20090401, end: 20130308
  36. LORAZEPAM. [Concomitant]
     Active Substance: LORAZEPAM
     Dosage: UNK
     Route: 048
     Dates: start: 20100315
  37. DILANTIN [Suspect]
     Active Substance: PHENYTOIN
     Dosage: 300 MG, DAILY AT BED TIME
     Route: 048
     Dates: end: 20080916
  38. DILANTIN [Suspect]
     Active Substance: PHENYTOIN
     Dosage: 300 MG, DAILY, TOOK THREE 100 MG CAPSULES AT BEDTIME
     Route: 048
     Dates: start: 20120618, end: 20130821
  39. DILANTIN [Suspect]
     Active Substance: PHENYTOIN
     Dosage: 400 MG, DAILY (REPORTED AS 100 MG, 4 CAPSULES AT BEDTIME)
     Route: 048
     Dates: start: 20140306, end: 20140310
  40. PHENYTEK [Suspect]
     Active Substance: PHENYTOIN SODIUM
     Indication: SEIZURE
     Dosage: 300 MG, DAILY
     Route: 048
     Dates: start: 20081119, end: 20090401
  41. ZONISAMIDE. [Concomitant]
     Active Substance: ZONISAMIDE
     Indication: SEIZURE
     Dosage: UNK
     Dates: start: 2017
  42. BACTRIM DS [Concomitant]
     Active Substance: SULFAMETHOXAZOLE\TRIMETHOPRIM
     Dosage: 1 DF, 2X/DAY
     Route: 048
     Dates: start: 20110413, end: 20110620
  43. THIAMINE. [Concomitant]
     Active Substance: THIAMINE
     Dosage: 100 MG, DAILY
     Route: 048
     Dates: end: 20080916

REACTIONS (3)
  - Cerebellar atrophy [Not Recovered/Not Resolved]
  - Product dose omission [Unknown]
  - Seizure [Unknown]

NARRATIVE: CASE EVENT DATE: 201707
